FAERS Safety Report 8433270-3 (Version None)
Quarter: 2012Q2

REPORT INFORMATION
  Report Type: 
  Country: None (occurrence: None)
  Receive Date: 20120613
  Receipt Date: 20120613
  Transmission Date: 20120825
  Serious: Yes (Death, Other)
  Sender: FDA-Public Use
  Company Number: US-PFIZER INC-2005127873

PATIENT
  Age: 89 Year

DRUGS (3)
  1. DETROL [Suspect]
     Route: 065
  2. FLUVASTATIN [Suspect]
  3. VERAPAMIL HCL [Suspect]

REACTIONS (1)
  - COMPLETED SUICIDE [None]
